FAERS Safety Report 7938980-X (Version None)
Quarter: 2011Q4

REPORT INFORMATION
  Report Type: 
  Country: None (occurrence: None)
  Receive Date: 20111124
  Receipt Date: 20111118
  Transmission Date: 20120403
  Serious: No
  Sender: FDA-Public Use
  Company Number: US-PFIZER INC-2011284195

PATIENT
  Sex: Female

DRUGS (2)
  1. ZYVOX [Suspect]
     Indication: SKIN INFECTION
     Dosage: UNK
  2. ZYVOX [Suspect]
     Indication: CELLULITIS

REACTIONS (3)
  - ABNORMAL BEHAVIOUR [None]
  - PERSONALITY CHANGE [None]
  - LETHARGY [None]
